FAERS Safety Report 6939303-5 (Version None)
Quarter: 2010Q3

REPORT INFORMATION
  Report Type: 
  Country: None (occurrence: None)
  Receive Date: 20100824
  Receipt Date: 20100818
  Transmission Date: 20110219
  Serious: Yes (Death)
  Sender: FDA-Public Use
  Company Number: US-GILEAD-2010-0031157

PATIENT
  Age: 73 Year
  Sex: Male

DRUGS (5)
  1. LETAIRIS [Suspect]
     Indication: PULMONARY ARTERIAL HYPERTENSION
     Route: 048
     Dates: start: 20090417
  2. SPIRONOLACTONE [Concomitant]
  3. LASIX [Concomitant]
  4. PROCRIT [Concomitant]
  5. SODIUM BICARB [Concomitant]

REACTIONS (1)
  - DEATH [None]
